FAERS Safety Report 12850184 (Version 2)
Quarter: 2018Q3

REPORT INFORMATION
  Report Type: Spontaneous
  Country: CA (occurrence: CA)
  Receive Date: 20161014
  Receipt Date: 20180813
  Transmission Date: 20181010
  Serious: Yes (Hospitalization, Other)
  Sender: FDA-Public Use
  Company Number: CA-SA-2016SA186143

PATIENT
  Age: 47 Year
  Sex: Female

DRUGS (6)
  1. TRASTUZUMAB. [Suspect]
     Active Substance: TRASTUZUMAB
     Indication: BREAST CANCER
     Dosage: UNK UNK,UNK
     Route: 042
     Dates: start: 2010, end: 20140316
  2. CYCLOPHOSPHAMIDE. [Suspect]
     Active Substance: CYCLOPHOSPHAMIDE
     Indication: BREAST CANCER
     Dosage: UNK UNK,UNK
     Route: 042
     Dates: start: 2010
  3. DOXORUBICIN [Suspect]
     Active Substance: DOXORUBICIN
     Indication: BREAST CANCER
     Dosage: UNK UNK,UNK
     Route: 042
     Dates: start: 2010
  4. TAXOTERE [Suspect]
     Active Substance: DOCETAXEL
     Indication: BREAST CANCER
     Dosage: UNK UNK,QCY
     Route: 042
     Dates: start: 2010, end: 2011
  5. TAMOXIFEN [Suspect]
     Active Substance: TAMOXIFEN
     Indication: BREAST CANCER
     Dosage: UNK UNK,UNK
     Route: 048
     Dates: start: 2011, end: 201310
  6. KADCYLA [Suspect]
     Active Substance: ADO-TRASTUZUMAB EMTANSINE
     Indication: HER-2 POSITIVE BREAST CANCER
     Dosage: 380 UNK
     Route: 065
     Dates: start: 20140320

REACTIONS (6)
  - Decreased appetite [Recovering/Resolving]
  - Epistaxis [Unknown]
  - Blood phosphorus decreased [Not Recovered/Not Resolved]
  - Nasal dryness [Unknown]
  - Blood test abnormal [Unknown]
  - Platelet count decreased [Not Recovered/Not Resolved]
